FAERS Safety Report 4470423-3 (Version None)
Quarter: 2004Q3

REPORT INFORMATION
  Report Type: 
  Country: None (occurrence: None)
  Receive Date: 20040909
  Receipt Date: 20040714
  Transmission Date: 20050211
  Serious: No
  Sender: FDA-Public Use
  Company Number: US-JNJFOC-20040602552

PATIENT
  Age: 62 Year
  Sex: Male

DRUGS (1)
  1. NATRECOR [Suspect]
     Indication: CARDIAC FAILURE CONGESTIVE
     Dosage: INTRAVENOUS
     Route: 042
     Dates: start: 20040601, end: 20040601

REACTIONS (3)
  - BACK PAIN [None]
  - INJECTION SITE EXTRAVASATION [None]
  - INSOMNIA [None]
